FAERS Safety Report 23762640 (Version 1)
Quarter: 2024Q2

REPORT INFORMATION
  Report Type: Report from Study
  Country: US (occurrence: None)
  Receive Date: 20240419
  Receipt Date: 20240419
  Transmission Date: 20240715
  Serious: Yes (Other)
  Sender: FDA-Public Use
  Company Number: 2024A089568

PATIENT
  Sex: Male

DRUGS (1)
  1. CALQUENCE [Suspect]
     Active Substance: ACALABRUTINIB
     Indication: Chronic lymphocytic leukaemia
     Route: 048
     Dates: start: 20230627

REACTIONS (5)
  - Neuropathy peripheral [Unknown]
  - Carpal tunnel syndrome [Unknown]
  - Contusion [Unknown]
  - Haemorrhage [Unknown]
  - Product dose omission issue [Unknown]
